FAERS Safety Report 9600066 (Version 1)
Quarter: 2013Q4

REPORT INFORMATION
  Report Type: Spontaneous
  Country: US (occurrence: US)
  Receive Date: 20131004
  Receipt Date: 20131004
  Transmission Date: 20140711
  Serious: No
  Sender: FDA-Public Use
  Company Number: US-AMGEN-USASP2013032127

PATIENT
  Age: 62 Year
  Sex: Female

DRUGS (4)
  1. ENBREL [Suspect]
     Indication: PRODUCT USED FOR UNKNOWN INDICATION
     Dosage: 50 MG, QWK
     Route: 058
  2. DIOVAN HCT [Concomitant]
     Dosage: UNK, 160-12.5
  3. FOLIC ACID [Concomitant]
     Dosage: UNK
  4. METHOTREXATE [Concomitant]
     Dosage: 2.5 MG, UNK

REACTIONS (2)
  - Pain [Unknown]
  - Contusion [Unknown]
